FAERS Safety Report 4472910-0 (Version None)
Quarter: 2004Q4

REPORT INFORMATION
  Report Type: 
  Country: None (occurrence: None)
  Receive Date: 20041013
  Receipt Date: 20041004
  Transmission Date: 20050328
  Serious: Yes (Death, Hospitalization)
  Sender: FDA-Public Use
  Company Number: JP-JNJFOC-20031201568

PATIENT
  Sex: Female

DRUGS (10)
  1. RISPERDAL [Suspect]
     Indication: SCHIZOPHRENIA, PARANOID TYPE
     Route: 049
  2. HALOPERIDOL [Suspect]
     Indication: SCHIZOPHRENIA, PARANOID TYPE
     Route: 049
  3. ZOTEPINE [Suspect]
     Indication: SCHIZOPHRENIA, PARANOID TYPE
     Route: 049
  4. LEVOMEPROMAZINE MALEATE [Suspect]
     Indication: SCHIZOPHRENIA, PARANOID TYPE
     Route: 049
  5. CARBAMAZEPINE [Concomitant]
     Route: 049
  6. BIPERIDEN HYDROCHLORIDE [Concomitant]
     Route: 049
  7. BROMAZEPAM [Concomitant]
     Route: 049
  8. TEPRENONE [Concomitant]
     Route: 049
  9. GENTIAN [Concomitant]
     Route: 049
  10. SODIUM BICARBONATE [Concomitant]
     Route: 049

REACTIONS (3)
  - CARDIO-RESPIRATORY ARREST [None]
  - PHLEBOTHROMBOSIS [None]
  - PULMONARY EMBOLISM [None]
